FAERS Safety Report 4888307-5 (Version None)
Quarter: 2006Q1

REPORT INFORMATION
  Report Type: 
  Country: None (occurrence: None)
  Receive Date: 20060123
  Receipt Date: 20050812
  Transmission Date: 20060701
  Serious: Yes (Hospitalization)
  Sender: FDA-Public Use
  Company Number: FR-GLAXOSMITHKLINE-B0390728A

PATIENT
  Age: 18 Year
  Sex: Female

DRUGS (1)
  1. LAMICTAL [Suspect]
     Indication: EPILEPSY
     Dosage: 75MG PER DAY
     Route: 048
     Dates: start: 20050522, end: 20050605

REACTIONS (9)
  - BLISTER [None]
  - CONJUNCTIVITIS [None]
  - DERMATITIS BULLOUS [None]
  - GENITAL EROSION [None]
  - IRIS ADHESIONS [None]
  - LYMPHADENOPATHY [None]
  - MUCOSAL EROSION [None]
  - PRURIGO [None]
  - TOXIC EPIDERMAL NECROLYSIS [None]
